FAERS Safety Report 4264436-4 (Version None)
Quarter: 2004Q1

REPORT INFORMATION
  Report Type: 
  Country: None (occurrence: None)
  Receive Date: 20040106
  Receipt Date: 20031223
  Transmission Date: 20041129
  Serious: Yes (Other)
  Sender: FDA-Public Use
  Company Number: ES-GLAXOSMITHKLINE-B0318541A

PATIENT
  Age: 31 Year
  Sex: Male

DRUGS (3)
  1. LAMIVUDINE [Suspect]
     Indication: HIV INFECTION
     Route: 065
  2. STAVUDINE [Concomitant]
     Indication: HIV INFECTION
     Route: 065
  3. NELFINAVIR [Concomitant]
     Indication: HIV INFECTION
     Route: 065

REACTIONS (3)
  - HEPATITIS B [None]
  - HEPATITIS B ANTIBODY POSITIVE [None]
  - URINE URIC ACID ABNORMAL [None]
